FAERS Safety Report 9907008 (Version 3)
Quarter: 2014Q1

REPORT INFORMATION
  Report Type: Spontaneous
  Country: IT (occurrence: IT)
  Receive Date: 20140218
  Receipt Date: 20140312
  Transmission Date: 20141002
  Serious: Yes (Other)
  Sender: FDA-Public Use
  Company Number: IT-ACTAVIS-2014-02499

PATIENT
  Age: 64 Year
  Sex: Female

DRUGS (3)
  1. DOCETAXEL (UNKNOWN) [Suspect]
     Indication: BREAST CANCER
     Dosage: 170 MG, CYCLICAL
     Route: 042
     Dates: start: 20090119, end: 20090709
  2. TRASTUZUMAB [Concomitant]
     Indication: BREAST CANCER
     Dosage: 400 MG, UNK
     Route: 042
     Dates: start: 20090119, end: 20120216
  3. HEPARINE SODIUM [Concomitant]
     Indication: JUGULAR VEIN THROMBOSIS
     Dosage: UNK
     Route: 065

REACTIONS (4)
  - Atrophy [Not Recovered/Not Resolved]
  - Carpal tunnel syndrome [Not Recovered/Not Resolved]
  - Nervous system disorder [Not Recovered/Not Resolved]
  - Brachial plexopathy [Not Recovered/Not Resolved]
